FAERS Safety Report 6729973-9 (Version None)
Quarter: 2010Q2

REPORT INFORMATION
  Report Type: 
  Country: None (occurrence: None)
  Receive Date: 20100513
  Receipt Date: 20100429
  Transmission Date: 20101027
  Serious: Yes (Death, Other)
  Sender: FDA-Public Use
  Company Number: FKO201000046

PATIENT
  Age: 60 Year
  Sex: Male

DRUGS (5)
  1. OXALIPLATIN [Suspect]
     Indication: COLORECTAL CANCER METASTATIC
     Dosage: (260 MG, 1/3 WEEKS), INTRAVENOUS
     Route: 042
     Dates: start: 20091027, end: 20091229
  2. CAPECITABINE [Suspect]
     Indication: COLORECTAL CANCER METASTATIC
     Dosage: (200 MG, 2/ DAYS), ORAL
     Route: 048
     Dates: start: 20091027, end: 20100107
  3. METOCLOPRAMIDE (METOCLOPRAMIDE) (METOCLOPRAMIDE) [Concomitant]
  4. AVASTIN [Concomitant]
  5. DEXAMETHASONE [Concomitant]

REACTIONS (6)
  - CONSTIPATION [None]
  - HYPOTENSION [None]
  - MALIGNANT NEOPLASM PROGRESSION [None]
  - PULMONARY EMBOLISM [None]
  - SEPSIS [None]
  - TACHYCARDIA [None]
